FAERS Safety Report 11849162 (Version 1)
Quarter: 2015Q4

REPORT INFORMATION
  Report Type: Spontaneous
  Country: US (occurrence: None)
  Receive Date: 20151217
  Receipt Date: 20151217
  Transmission Date: 20160305
  Serious: Yes (Disabling)
  Sender: FDA-Public Use
  Company Number: None

PATIENT
  Age: 20 Year
  Sex: Female
  Weight: 63.5 kg

DRUGS (1)
  1. DEPO-PROVERA [Suspect]
     Active Substance: MEDROXYPROGESTERONE ACETATE
     Indication: CONTRACEPTION
     Dosage: EVERY 13 WEEKS
     Route: 028
     Dates: start: 19950415, end: 20110601

REACTIONS (4)
  - Dental caries [None]
  - Tooth loss [None]
  - Periodontal disease [None]
  - Tooth disorder [None]

NARRATIVE: CASE EVENT DATE: 20151216
